FAERS Safety Report 9565872 (Version 2)
Quarter: 2013Q4

REPORT INFORMATION
  Report Type: Report from Study
  Country: US (occurrence: US)
  Receive Date: 20130930
  Receipt Date: 20131028
  Transmission Date: 20140711
  Serious: Yes (Other)
  Sender: FDA-Public Use
  Company Number: PHEH2013US020126

PATIENT
  Sex: Female

DRUGS (5)
  1. GILENYA [Suspect]
     Indication: MULTIPLE SCLEROSIS
     Dosage: 0.5 MG, QD
     Route: 048
     Dates: start: 20110601
  2. OXCARBAZEPINE [Concomitant]
     Dosage: 150 MG, BID
     Route: 048
  3. TYLENOL [Concomitant]
  4. CODEINE [Concomitant]
  5. KLONOPIN [Concomitant]
     Dosage: 1 MG, QHS
     Route: 048

REACTIONS (1)
  - Myasthenia gravis [Recovering/Resolving]
